FAERS Safety Report 16036496 (Version 1)
Quarter: 2019Q1

REPORT INFORMATION
  Report Type: Spontaneous
  Country: DE (occurrence: DE)
  Receive Date: 20190305
  Receipt Date: 20190305
  Transmission Date: 20190418
  Serious: Yes (Other)
  Sender: FDA-Public Use
  Company Number: DE-PFIZER INC-2019089029

PATIENT
  Sex: Female
  Weight: 75 kg

DRUGS (1)
  1. SERTRALINE HCL [Suspect]
     Active Substance: SERTRALINE HYDROCHLORIDE
     Dosage: UNK

REACTIONS (4)
  - Photosensitivity reaction [Unknown]
  - Depressed level of consciousness [Unknown]
  - Decreased appetite [Unknown]
  - Seizure [Unknown]
